FAERS Safety Report 20822886 (Version 1)
Quarter: 2022Q2

REPORT INFORMATION
  Report Type: Spontaneous
  Country: AE (occurrence: US)
  Receive Date: 20220512
  Receipt Date: 20220512
  Transmission Date: 20220721
  Serious: Yes (Hospitalization)
  Sender: FDA-Public Use
  Company Number: US-Blueprint Medicines Corporation-85

PATIENT
  Sex: Male

DRUGS (2)
  1. AYVAKIT [Suspect]
     Active Substance: AVAPRITINIB
     Indication: Systemic mastocytosis
     Route: 048
     Dates: start: 20210920
  2. JAKAFI [Concomitant]
     Active Substance: RUXOLITINIB
     Indication: Systemic mastocytosis
     Route: 048

REACTIONS (2)
  - Illness [Unknown]
  - Stem cell transplant [Unknown]
